FAERS Safety Report 19548320 (Version 6)
Quarter: 2021Q3

REPORT INFORMATION
  Report Type: Spontaneous
  Country: US (occurrence: US)
  Receive Date: 20210715
  Receipt Date: 20210830
  Transmission Date: 20211014
  Serious: Yes (Hospitalization)
  Sender: FDA-Public Use
  Company Number: US-GLOBAL BLOOD THERAPEUTICS INC-US-GBT-21-02393

PATIENT
  Age: 15 Year
  Sex: Female

DRUGS (2)
  1. OXBRYTA [Suspect]
     Active Substance: VOXELOTOR
     Indication: SICKLE CELL DISEASE
     Route: 048
     Dates: start: 20210629, end: 20210712
  2. OXBRYTA [Suspect]
     Active Substance: VOXELOTOR
     Dosage: NOT PROVIDED
     Route: 048
     Dates: start: 202107, end: 202107

REACTIONS (10)
  - Sickle cell anaemia with crisis [Recovering/Resolving]
  - Gait disturbance [Not Recovered/Not Resolved]
  - Pyrexia [Not Recovered/Not Resolved]
  - Therapy interrupted [Unknown]
  - Illness [Unknown]
  - Rash pruritic [Not Recovered/Not Resolved]
  - Viral infection [Unknown]
  - Urticaria [Not Recovered/Not Resolved]
  - Transfusion [Unknown]
  - Ocular hyperaemia [Unknown]

NARRATIVE: CASE EVENT DATE: 2021
